FAERS Safety Report 17965192 (Version 1)
Quarter: 2020Q3

REPORT INFORMATION
  Report Type: Spontaneous
  Country: US (occurrence: US)
  Receive Date: 20200701
  Receipt Date: 20200701
  Transmission Date: 20201103
  Serious: No
  Sender: FDA-Public Use
  Company Number: US-BIOGEN-2020BI00889586

PATIENT
  Age: 52 Year
  Sex: Female

DRUGS (1)
  1. SPINRAZA [Suspect]
     Active Substance: NUSINERSEN
     Indication: SPINAL MUSCULAR ATROPHY
     Route: 065

REACTIONS (3)
  - Muscle tightness [Recovered/Resolved]
  - Blood prolactin increased [Unknown]
  - Empty sella syndrome [Unknown]

NARRATIVE: CASE EVENT DATE: 202006
